FAERS Safety Report 17319600 (Version 2)
Quarter: 2020Q1

REPORT INFORMATION
  Report Type: Spontaneous
  Country: JP (occurrence: JP)
  Receive Date: 20200125
  Receipt Date: 20200206
  Transmission Date: 20200409
  Serious: Yes (Life-Threatening, Hospitalization, Other)
  Sender: FDA-Public Use
  Company Number: JP-ACCORD-170551

PATIENT
  Age: 9 Year
  Sex: Female
  Weight: 30.6 kg

DRUGS (2)
  1. DASATINIB. [Interacting]
     Active Substance: DASATINIB
     Indication: ACUTE LYMPHOCYTIC LEUKAEMIA
     Dosage: ON DAY 0 AND 1
     Route: 048
  2. METHOTREXATE. [Suspect]
     Active Substance: METHOTREXATE
     Indication: ACUTE LYMPHOCYTIC LEUKAEMIA
     Dosage: HDMTX (5 G/M2, 5 G/KG CUMULATIVE DOSE
     Route: 041

REACTIONS (3)
  - Drug interaction [Unknown]
  - Drug clearance decreased [Unknown]
  - Acute kidney injury [Unknown]
